FAERS Safety Report 7301710-9 (Version None)
Quarter: 2011Q1

REPORT INFORMATION
  Report Type: 
  Country: None (occurrence: None)
  Receive Date: 20110218
  Receipt Date: 20110210
  Transmission Date: 20110831
  Serious: Yes (Life-Threatening, Hospitalization)
  Sender: FDA-Public Use
  Company Number: AU-CELGENEUS-008-50794-11020500

PATIENT
  Sex: Female

DRUGS (3)
  1. EVEROLIMUS [Suspect]
     Route: 065
     Dates: start: 20100507, end: 20101010
  2. VIDAZA [Suspect]
     Route: 065
     Dates: start: 20100503
  3. VIDAZA [Suspect]
     Route: 065
     Dates: start: 20100920, end: 20100928

REACTIONS (1)
  - CARDIAC FAILURE [None]
